FAERS Safety Report 25778335 (Version 1)
Quarter: 2025Q3

REPORT INFORMATION
  Report Type: Spontaneous
  Country: US (occurrence: US)
  Receive Date: 20250909
  Receipt Date: 20250909
  Transmission Date: 20251020
  Serious: No
  Sender: NOVEN
  Company Number: US-NOVEN PHARMACEUTICALS, INC.-2025-NOV-US000843

PATIENT
  Age: 53 Year
  Sex: Female
  Weight: 63.492 kg

DRUGS (2)
  1. COMBIPATCH [Suspect]
     Active Substance: ESTRADIOL\NORETHINDRONE ACETATE
     Indication: Menopausal symptoms
     Route: 062
  2. METHYLTESTOSTERONE [Concomitant]
     Active Substance: METHYLTESTOSTERONE
     Indication: Menopausal symptoms
     Route: 065

REACTIONS (6)
  - Palpitations [Not Recovered/Not Resolved]
  - Product ineffective [Not Recovered/Not Resolved]
  - Adhesive tape use [Not Recovered/Not Resolved]
  - Wrong technique in product usage process [Not Recovered/Not Resolved]
  - Device difficult to use [Not Recovered/Not Resolved]
  - Product adhesion issue [Not Recovered/Not Resolved]

NARRATIVE: CASE EVENT DATE: 20250401
